FAERS Safety Report 9757422 (Version 2)
Quarter: 2013Q4

REPORT INFORMATION
  Report Type: Spontaneous
  Country: NL (occurrence: NL)
  Receive Date: 20131214
  Receipt Date: 20131214
  Transmission Date: 20140711
  Serious: Yes (Other)
  Sender: FDA-Public Use
  Company Number: NL-THROMBOGENICS INC.-JET-2013-241

PATIENT
  Age: 59 Year
  Sex: Female

DRUGS (2)
  1. JETREA [Suspect]
     Indication: VITREOUS ADHESIONS
     Dosage: 0.125 MG, ONE TIME DOSE
     Route: 031
     Dates: start: 20130913, end: 20130913
  2. JETREA [Suspect]
     Indication: MACULAR HOLE

REACTIONS (3)
  - Retinal detachment [Not Recovered/Not Resolved]
  - Photopsia [Not Recovered/Not Resolved]
  - Chromatopsia [Not Recovered/Not Resolved]
